FAERS Safety Report 6673035-6 (Version None)
Quarter: 2010Q2

REPORT INFORMATION
  Report Type: 
  Country: None (occurrence: None)
  Receive Date: 20100408
  Receipt Date: 20100330
  Transmission Date: 20101027
  Serious: Yes (Hospitalization)
  Sender: FDA-Public Use
  Company Number: PHEH2010US02922

PATIENT
  Sex: Female

DRUGS (2)
  1. GLEEVEC [Suspect]
     Indication: CHRONIC MYELOID LEUKAEMIA
     Dosage: 400 MG, QD
     Route: 048
     Dates: start: 20100201
  2. GLEEVEC [Suspect]
     Dosage: 400 MG EVERY OTHER DAY
     Dates: end: 20100301

REACTIONS (7)
  - ABDOMINAL PAIN UPPER [None]
  - CONCOMITANT DISEASE AGGRAVATED [None]
  - CYTOMEGALOVIRUS OESOPHAGITIS [None]
  - HEADACHE [None]
  - OESOPHAGEAL PAIN [None]
  - OESOPHAGITIS [None]
  - PERIORBITAL OEDEMA [None]
